FAERS Safety Report 25251054 (Version 3)
Quarter: 2025Q2

REPORT INFORMATION
  Report Type: Spontaneous
  Country: US (occurrence: US)
  Receive Date: 20250429
  Receipt Date: 20250611
  Transmission Date: 20250717
  Serious: No
  Sender: KARYOPHARM THERAPEUTICS
  Company Number: US-KARYOPHARM-2025KPT100187

PATIENT

DRUGS (10)
  1. SELINEXOR [Suspect]
     Active Substance: SELINEXOR
     Indication: Plasma cell myeloma
     Route: 048
     Dates: start: 20250424, end: 202506
  2. ACYCLOVIR [Concomitant]
     Active Substance: ACYCLOVIR
  3. ALOSETRON HYDROCHLORIDE [Concomitant]
     Active Substance: ALOSETRON HYDROCHLORIDE
  4. AMLODIPINE BESYLATE [Concomitant]
     Active Substance: AMLODIPINE BESYLATE
  5. DARZALEX [Concomitant]
     Active Substance: DARATUMUMAB
  6. ELIQUIS [Concomitant]
     Active Substance: APIXABAN
  7. LUPRON DEPOT [Concomitant]
     Active Substance: LEUPROLIDE ACETATE
  8. PROCHLORPERAZINE MALEATE [Concomitant]
     Active Substance: PROCHLORPERAZINE MALEATE
  9. SULFAMETHOXAZOLE\TRIMETHOPRIM [Concomitant]
     Active Substance: SULFAMETHOXAZOLE\TRIMETHOPRIM
  10. XTANDI [Concomitant]
     Active Substance: ENZALUTAMIDE

REACTIONS (2)
  - Nausea [Not Recovered/Not Resolved]
  - Vomiting [Unknown]

NARRATIVE: CASE EVENT DATE: 20250101
